FAERS Safety Report 5890049-4 (Version None)
Quarter: 2008Q3

REPORT INFORMATION
  Report Type: 
  Country: None (occurrence: None)
  Receive Date: 20080919
  Receipt Date: 20080909
  Transmission Date: 20090109
  Serious: Yes (Life-Threatening, Other)
  Sender: FDA-Public Use
  Company Number: FR-PFIZER INC-2008056057

PATIENT
  Sex: Male
  Weight: 88 kg

DRUGS (10)
  1. LYRICA [Suspect]
     Indication: NEURALGIA
     Dates: end: 20080606
  2. LOSARTAN [Concomitant]
     Indication: CARDIAC FAILURE
     Route: 048
  3. ISRADIPINE [Concomitant]
     Indication: HYPERTENSION
     Route: 048
  4. FUROSEMIDE [Concomitant]
     Indication: CARDIAC FAILURE
     Route: 048
  5. FLUVASTATIN [Concomitant]
     Indication: DYSLIPIDAEMIA
     Route: 048
  6. FLUINDIONE [Concomitant]
     Indication: ATRIAL FIBRILLATION
     Route: 048
  7. FLUINDIONE [Concomitant]
     Indication: HEART VALVE REPLACEMENT
  8. TRINITRINE [Concomitant]
     Indication: CARDIAC FAILURE
     Route: 062
  9. CLONAZEPAM [Concomitant]
     Indication: NEUROPATHY PERIPHERAL
     Route: 048
  10. GLICLAZIDE [Concomitant]
     Indication: TYPE 2 DIABETES MELLITUS

REACTIONS (2)
  - DRUG INEFFECTIVE [None]
  - VENTRICULAR FAILURE [None]
